FAERS Safety Report 23801903 (Version 2)
Quarter: 2024Q2

REPORT INFORMATION
  Report Type: Report from Study
  Country: US (occurrence: US)
  Receive Date: 20240501
  Receipt Date: 20240514
  Transmission Date: 20240716
  Serious: Yes (Other)
  Sender: FDA-Public Use
  Company Number: US-HORIZON THERAPEUTICS-HZN-2024-003354

PATIENT

DRUGS (3)
  1. TEPEZZA [Suspect]
     Active Substance: TEPROTUMUMAB-TRBW
     Indication: Endocrine ophthalmopathy
     Dosage: UNK, 1ST INFUSION
     Route: 042
     Dates: start: 20231207
  2. TEPEZZA [Suspect]
     Active Substance: TEPROTUMUMAB-TRBW
     Dosage: 1760 MG, EVERY 3 WEEKS, UNK INFUSION
     Route: 042
     Dates: start: 20240228
  3. LEVOTHYROXINE [Concomitant]
     Active Substance: LEVOTHYROXINE\LEVOTHYROXINE SODIUM
     Dosage: 130 UG, QD

REACTIONS (8)
  - Diabetes mellitus [Unknown]
  - Dry mouth [Unknown]
  - Dehydration [Unknown]
  - Pollakiuria [Unknown]
  - Ear discomfort [Unknown]
  - Hypoacusis [Unknown]
  - Fatigue [Not Recovered/Not Resolved]
  - Nausea [Unknown]

NARRATIVE: CASE EVENT DATE: 20240301
